FAERS Safety Report 13607822 (Version 2)
Quarter: 2017Q2

REPORT INFORMATION
  Report Type: Spontaneous
  Country: PL (occurrence: PL)
  Receive Date: 20170602
  Receipt Date: 20170616
  Transmission Date: 20170830
  Serious: Yes (Hospitalization, Other)
  Sender: FDA-Public Use
  Company Number: PL-INCYTE CORPORATION-2017IN004233

PATIENT

DRUGS (1)
  1. JAKAVI [Suspect]
     Active Substance: RUXOLITINIB
     Indication: PRIMARY MYELOFIBROSIS
     Dosage: UNK
     Route: 065
     Dates: start: 201511, end: 201605

REACTIONS (8)
  - Pulmonary tuberculosis [Unknown]
  - Pulmonary fibrosis [Unknown]
  - Skin lesion [Unknown]
  - Neutropenia [Unknown]
  - Necrosis [Unknown]
  - Atypical mycobacterial infection [Unknown]
  - Thrombocytopenia [Unknown]
  - Cough [Unknown]
